FAERS Safety Report 14858874 (Version 2)
Quarter: 2020Q4

REPORT INFORMATION
  Report Type: Spontaneous
  Country: US (occurrence: US)
  Receive Date: 20180508
  Receipt Date: 20201028
  Transmission Date: 20210113
  Serious: Yes (Disabling)
  Sender: FDA-Public Use
  Company Number: US-TEVA-785787USA

PATIENT
  Age: 64 Year
  Sex: Female

DRUGS (25)
  1. DOCETAXEL HOSPIRA [Suspect]
     Active Substance: DOCETAXEL
     Indication: BREAST CANCER
     Dosage: NUMBER OF CYCLES: 04
     Route: 065
     Dates: start: 20140107, end: 20140305
  2. INSULIN/NOVOLOG [Concomitant]
  3. SENSIPAR [Concomitant]
     Active Substance: CINACALCET HYDROCHLORIDE
     Dates: start: 20100101, end: 20121231
  4. PROGRAF [Concomitant]
     Active Substance: TACROLIMUS
     Dosage: THREE CAPSULES EVERY 12 HOURS
     Dates: start: 20200101
  5. ZEMPLAR [Concomitant]
     Active Substance: PARICALCITOL
     Dates: start: 20070101
  6. PERJETA [Concomitant]
     Active Substance: PERTUZUMAB
  7. ELLENCE [Concomitant]
     Active Substance: EPIRUBICIN HYDROCHLORIDE
  8. PLAVIX [Concomitant]
     Active Substance: CLOPIDOGREL BISULFATE
     Dosage: 75 MILLIGRAM DAILY; DAILY
  9. ZEMPLAR [Concomitant]
     Active Substance: PARICALCITOL
     Dates: start: 20100101
  10. CELLCEPT [Concomitant]
     Active Substance: MYCOPHENOLATE MOFETIL\MYCOPHENOLATE MOFETIL HYDROCHLORIDE
     Dosage: 500 MILLIGRAM DAILY;
     Dates: start: 20100101
  11. DOCETAXEL SANOFI (WINTHROP) [Suspect]
     Active Substance: DOCETAXEL
     Indication: BREAST CANCER
     Dosage: NUMBER OF CYCLES: 04
     Route: 065
     Dates: start: 20140107, end: 20140305
  12. DOCETAXEL SANDOZ [Suspect]
     Active Substance: DOCETAXEL
     Indication: BREAST CANCER
     Dosage: NUMBER OF CYCLES: 04
     Route: 065
     Dates: start: 20140107, end: 20140305
  13. CYTOXAN [Concomitant]
     Active Substance: CYCLOPHOSPHAMIDE
  14. HERCEPTIN [Concomitant]
     Active Substance: TRASTUZUMAB
  15. INSULIN GLARGINE [Concomitant]
     Active Substance: INSULIN GLARGINE
     Dosage: MONTH
     Dates: start: 20070101
  16. DECADRON [Concomitant]
     Active Substance: DEXAMETHASONE
     Dates: start: 20070101
  17. THERAGRAN MULTIVITAMIN [Concomitant]
  18. 5-FLUOROURACIL [Concomitant]
     Active Substance: FLUOROURACIL
  19. NORVASC [Concomitant]
     Active Substance: AMLODIPINE BESYLATE
     Dates: start: 20100101, end: 20121231
  20. HECTOROL [Concomitant]
     Active Substance: DOXERCALCIFEROL
     Dosage: 2.5 MILLIGRAM DAILY;
     Dates: start: 20100101
  21. MAGNESIUM OXIDE. [Concomitant]
     Active Substance: MAGNESIUM OXIDE
     Dates: start: 20070101
  22. AMLODIPINE [Concomitant]
     Active Substance: AMLODIPINE BESYLATE
     Dates: start: 20070101
  23. COLACE [Concomitant]
     Active Substance: DOCUSATE SODIUM
  24. CRESTOR [Concomitant]
     Active Substance: ROSUVASTATIN CALCIUM
     Dates: start: 20070101
  25. LISINOPRIL. [Concomitant]
     Active Substance: LISINOPRIL
     Dates: start: 20070101

REACTIONS (4)
  - Alopecia [Not Recovered/Not Resolved]
  - Hair texture abnormal [Not Recovered/Not Resolved]
  - Hair colour changes [Not Recovered/Not Resolved]
  - Madarosis [Not Recovered/Not Resolved]

NARRATIVE: CASE EVENT DATE: 201401
